FAERS Safety Report 24448868 (Version 2)
Quarter: 2025Q2

REPORT INFORMATION
  Report Type: Spontaneous
  Country: NL (occurrence: NL)
  Receive Date: 20241017
  Receipt Date: 20250407
  Transmission Date: 20250716
  Serious: Yes (Hospitalization)
  Sender: AUROBINDO
  Company Number: NL-TEVA-VS-3248336

PATIENT
  Age: 60 Year
  Sex: Female

DRUGS (7)
  1. PREDNISONE [Suspect]
     Active Substance: PREDNISONE
     Indication: Adult T-cell lymphoma/leukaemia
     Route: 065
  2. PREDNISONE [Suspect]
     Active Substance: PREDNISONE
     Indication: Human T-cell lymphotropic virus type I infection
  3. CALCITONIN [Suspect]
     Active Substance: CALCITONIN
     Indication: Hypercalcaemia
     Route: 065
  4. DENOSUMAB [Suspect]
     Active Substance: DENOSUMAB
     Indication: Hypercalcaemia
     Route: 065
  5. DENOSUMAB [Suspect]
     Active Substance: DENOSUMAB
     Route: 065
  6. PAMIDRONATE [Suspect]
     Active Substance: PAMIDRONATE DISODIUM
     Indication: Hypercalcaemia
     Route: 065
  7. CINACALCET [Concomitant]
     Active Substance: CINACALCET
     Indication: Drug therapy
     Route: 065

REACTIONS (2)
  - Hypocalcaemia [Recovered/Resolved]
  - Drug ineffective [Unknown]
